FAERS Safety Report 18686863 (Version 1)
Quarter: 2020Q4

REPORT INFORMATION
  Report Type: Spontaneous
  Country: CA (occurrence: CA)
  Receive Date: 20201231
  Receipt Date: 20201231
  Transmission Date: 20210114
  Serious: Yes (Death)
  Sender: FDA-Public Use
  Company Number: CA-ROCHE-2741784

PATIENT
  Age: 71 Year
  Sex: Male

DRUGS (15)
  1. LORAZEPAM. [Concomitant]
     Active Substance: LORAZEPAM
  2. METOPROLOL. [Concomitant]
     Active Substance: METOPROLOL
  3. PROCYTOX [Suspect]
     Active Substance: CYCLOPHOSPHAMIDE
     Indication: CHEMOTHERAPY
     Route: 042
  4. METOCLOPRAMIDE. [Concomitant]
     Active Substance: METOCLOPRAMIDE
  5. PERINDOPRIL [Concomitant]
     Active Substance: PERINDOPRIL
  6. MORPHINE [Concomitant]
     Active Substance: MORPHINE
  7. RITUXAN [Suspect]
     Active Substance: RITUXIMAB
     Indication: CHEMOTHERAPY
     Route: 041
  8. VINCRISTINE SULFATE. [Suspect]
     Active Substance: VINCRISTINE SULFATE
     Indication: CHEMOTHERAPY
     Route: 042
  9. DOXORUBICIN [Suspect]
     Active Substance: DOXORUBICIN
     Indication: CHEMOTHERAPY
     Route: 065
  10. GLICLAZIDE [Concomitant]
     Active Substance: GLICLAZIDE
  11. METFORMIN [Concomitant]
     Active Substance: METFORMIN HYDROCHLORIDE
  12. PANTOPRAZOLE [Concomitant]
     Active Substance: PANTOPRAZOLE
  13. AMLODIPINE [Concomitant]
     Active Substance: AMLODIPINE BESYLATE
  14. FUROSEMIDE. [Concomitant]
     Active Substance: FUROSEMIDE
  15. ROSUVASTATIN. [Concomitant]
     Active Substance: ROSUVASTATIN

REACTIONS (3)
  - Neutropenia [Fatal]
  - Hypotension [Fatal]
  - Intensive care [Fatal]
